FAERS Safety Report 19498149 (Version 4)
Quarter: 2022Q4

REPORT INFORMATION
  Report Type: Report from Study
  Country: ZA (occurrence: ZA)
  Receive Date: 20210706
  Receipt Date: 20221010
  Transmission Date: 20230112
  Serious: Yes (Other)
  Sender: FDA-Public Use
  Company Number: ZA-NOVARTISPH-NVSC2021ZA128223

PATIENT
  Age: 45 Year
  Sex: Female
  Weight: 106 kg

DRUGS (4)
  1. COSENTYX [Suspect]
     Active Substance: SECUKINUMAB
     Indication: Ankylosing spondylitis
     Dosage: 150 MG, QW
     Route: 058
     Dates: start: 20210524
  2. COSENTYX [Suspect]
     Active Substance: SECUKINUMAB
     Dosage: 150 MG, QMO
     Route: 058
     Dates: start: 20210524
  3. COSENTYX [Suspect]
     Active Substance: SECUKINUMAB
     Dosage: 300 MG
     Route: 058
  4. COSENTYX [Suspect]
     Active Substance: SECUKINUMAB
     Dosage: 150 MG, QMO
     Route: 058

REACTIONS (17)
  - Lower respiratory tract infection [Unknown]
  - Cough [Unknown]
  - Ankylosing spondylitis [Unknown]
  - Joint stiffness [Unknown]
  - Arthralgia [Unknown]
  - Musculoskeletal stiffness [Unknown]
  - Breakthrough pain [Unknown]
  - Nasopharyngitis [Unknown]
  - Fatigue [Unknown]
  - Nasal congestion [Unknown]
  - Oropharyngeal pain [Unknown]
  - Productive cough [Unknown]
  - Pharyngitis [Unknown]
  - Ligament sprain [Unknown]
  - Ankle fracture [Unknown]
  - Cartilage injury [Unknown]
  - Foot fracture [Unknown]

NARRATIVE: CASE EVENT DATE: 20210524
